APPROVED DRUG PRODUCT: AZASITE
Active Ingredient: AZITHROMYCIN
Strength: 1%
Dosage Form/Route: SOLUTION/DROPS;OPHTHALMIC
Application: N050810 | Product #001
Applicant: THEA PHARMA INC
Approved: Apr 27, 2007 | RLD: Yes | RS: Yes | Type: RX